FAERS Safety Report 11218223 (Version 1)
Quarter: 2015Q2

REPORT INFORMATION
  Report Type: Spontaneous
  Country: FR (occurrence: FR)
  Receive Date: 20150625
  Receipt Date: 20150625
  Transmission Date: 20150821
  Serious: Yes (Other)
  Sender: FDA-Public Use
  Company Number: FR-TEVA-572202ISR

PATIENT
  Age: 38 Year
  Sex: Female

DRUGS (5)
  1. AIROMIR AUTOHALER 100 MCG/DOSE [Suspect]
     Active Substance: ALBUTEROL SULFATE
     Dosage: 2 DOSAGE FORMS DAILY; FORM: SUSPENSION FOR INHALATION IN PRESSURISED BOTTLE
     Route: 055
  2. SERETIDE [Suspect]
     Active Substance: FLUTICASONE FUROATE\SALMETEROL XINAFOATE
     Indication: ASTHMA
     Dosage: 1 DOSAGE FORMS DAILY;
     Route: 055
  3. FOSAMAX [Suspect]
     Active Substance: ALENDRONATE SODIUM
     Indication: OSTEOPOROTIC FRACTURE
     Route: 048
     Dates: start: 2014, end: 201505
  4. ZECLAR [Concomitant]
     Active Substance: CLARITHROMYCIN
     Indication: IMMUNOMODULATORY THERAPY
     Dosage: EPISODIC TREATMENT
  5. INIPOMP [Concomitant]
     Active Substance: PANTOPRAZOLE SODIUM
     Indication: IMMUNOMODULATORY THERAPY
     Dosage: EPISODIC TREATMENT

REACTIONS (1)
  - Tooth injury [Recovered/Resolved]

NARRATIVE: CASE EVENT DATE: 201504
